FAERS Safety Report 16192924 (Version 1)
Quarter: 2019Q2

REPORT INFORMATION
  Report Type: Spontaneous
  Country: US (occurrence: US)
  Receive Date: 20190413
  Receipt Date: 20190413
  Transmission Date: 20190711
  Serious: No
  Sender: FDA-Public Use
  Company Number: US-UNITED THERAPEUTICS-UNT-2019-006582

PATIENT
  Age: 29 Year
  Sex: Female

DRUGS (1)
  1. REMODULIN [Suspect]
     Active Substance: TREPROSTINIL
     Indication: PULMONARY ARTERIAL HYPERTENSION
     Dosage: 0.0505 ?G/KG, CONTINUING
     Route: 041
     Dates: start: 20180830

REACTIONS (2)
  - Dermatitis contact [Recovering/Resolving]
  - Device adhesion issue [Unknown]

NARRATIVE: CASE EVENT DATE: 20190408
